FAERS Safety Report 4661026-6 (Version None)
Quarter: 2005Q2

REPORT INFORMATION
  Report Type: 
  Country: None (occurrence: None)
  Receive Date: 20050511
  Receipt Date: 20050428
  Transmission Date: 20051028
  Serious: Yes (Hospitalization, Other)
  Sender: FDA-Public Use
  Company Number: 2005056062

PATIENT
  Age: 47 Year
  Sex: Female
  Weight: 67.586 kg

DRUGS (3)
  1. ZITHROMAX [Suspect]
     Indication: UPPER RESPIRATORY TRACT INFECTION
     Dosage: 500 MG (250 MG SINGLE DOSE), ORAL
     Route: 048
     Dates: start: 20041215, end: 20041215
  2. ZITHROMAX [Suspect]
     Indication: UPPER RESPIRATORY TRACT INFECTION
     Dosage: 500 MG (250 MG SINGLE DOSE), ORAL
     Route: 048
     Dates: start: 20050405, end: 20050405
  3. SERTRALINE HCL [Concomitant]

REACTIONS (3)
  - COLITIS ISCHAEMIC [None]
  - RECTAL HAEMORRHAGE [None]
  - UPPER RESPIRATORY TRACT INFECTION [None]
